FAERS Safety Report 7703707-3 (Version None)
Quarter: 2011Q3

REPORT INFORMATION
  Report Type: 
  Country: None (occurrence: None)
  Receive Date: 20110823
  Receipt Date: 20110816
  Transmission Date: 20111222
  Serious: Yes (Hospitalization, Other)
  Sender: FDA-Public Use
  Company Number: US-ABBOTT-11P-163-0847789-00

PATIENT
  Age: 54 Year
  Sex: Male

DRUGS (2)
  1. HUMIRA [Suspect]
     Route: 058
  2. HUMIRA [Suspect]
     Indication: PSORIASIS
     Route: 058
     Dates: start: 20070101

REACTIONS (2)
  - PNEUMONIA [None]
  - PYREXIA [None]
